FAERS Safety Report 13578373 (Version 1)
Quarter: 2017Q2

REPORT INFORMATION
  Report Type: Spontaneous
  Country: US (occurrence: US)
  Receive Date: 20170524
  Receipt Date: 20170524
  Transmission Date: 20170830
  Serious: Yes (Other)
  Sender: FDA-Public Use
  Company Number: US-REGENERON PHARMACEUTICALS, INC.-2017-15881

PATIENT

DRUGS (2)
  1. EYLEA [Suspect]
     Active Substance: AFLIBERCEPT
     Indication: NEOVASCULAR AGE-RELATED MACULAR DEGENERATION
     Dosage: 2 MG MILLIGRAM(S), EVERY 1-2 MONTHS LEFT EYE
     Route: 031
     Dates: start: 20170117
  2. EYLEA [Suspect]
     Active Substance: AFLIBERCEPT
     Dosage: 2 MG EVERY 1-2 MONTHS LEFT EYE
     Route: 031
     Dates: start: 20170404, end: 20170404

REACTIONS (8)
  - Skin exfoliation [Recovering/Resolving]
  - Peripheral swelling [Unknown]
  - Rash [Recovering/Resolving]
  - Swelling face [Recovered/Resolved]
  - Drug dose omission [Unknown]
  - Delirium [Recovered/Resolved]
  - Pain in jaw [Recovered/Resolved]
  - Pyrexia [Recovered/Resolved]

NARRATIVE: CASE EVENT DATE: 2017
